FAERS Safety Report 8131964-0 (Version None)
Quarter: 2012Q1

REPORT INFORMATION
  Report Type: 
  Country: None (occurrence: None)
  Receive Date: 20120213
  Receipt Date: 20120206
  Transmission Date: 20120608
  Serious: Yes (Other)
  Sender: FDA-Public Use
  Company Number: TW-CELGENEUS-153-21880-12020671

PATIENT
  Sex: Female
  Weight: 56.4 kg

DRUGS (4)
  1. DEXAMETHASONE [Suspect]
     Route: 065
     Dates: start: 20110422
  2. REVLIMID [Suspect]
     Dosage: 10 MILLIGRAM
     Route: 048
     Dates: start: 20110422
  3. REVLIMID [Suspect]
     Dosage: 10 MILLIGRAM
     Route: 048
     Dates: start: 20120203
  4. DEXAMETHASONE [Suspect]
     Route: 065
     Dates: start: 20120203

REACTIONS (1)
  - TONGUE NEOPLASM MALIGNANT STAGE UNSPECIFIED [None]
